FAERS Safety Report 21689133 (Version 1)
Quarter: 2022Q4

REPORT INFORMATION
  Report Type: Report from Study
  Country: NL (occurrence: NL)
  Receive Date: 20221206
  Receipt Date: 20221206
  Transmission Date: 20230113
  Serious: Yes (Other)
  Sender: FDA-Public Use
  Company Number: NL-VER-202100019

PATIENT
  Age: 68 Year
  Sex: Male

DRUGS (1)
  1. TRIPTORELIN PAMOATE [Suspect]
     Active Substance: TRIPTORELIN PAMOATE
     Indication: Product used for unknown indication
     Dosage: PAMORELIN 22.5 MG SOLVENT 2ML (1ST) (POWDER FOR PROLONGED-RELEASE SUSPENSION FOR INJECTION)
     Route: 030
     Dates: start: 20190913

REACTIONS (1)
  - Metastases to spinal cord [Not Recovered/Not Resolved]

NARRATIVE: CASE EVENT DATE: 20210316
